FAERS Safety Report 12864986 (Version 1)
Quarter: 2016Q4

REPORT INFORMATION
  Report Type: Spontaneous
  Country: SI (occurrence: SI)
  Receive Date: 20161020
  Receipt Date: 20161020
  Transmission Date: 20170207
  Serious: Yes (Hospitalization)
  Sender: FDA-Public Use
  Company Number: SI-ROCHE-1843400

PATIENT
  Age: 63 Year
  Sex: Male
  Weight: 80 kg

DRUGS (8)
  1. MABTHERA [Suspect]
     Active Substance: RITUXIMAB
     Indication: RHEUMATOID ARTHRITIS
     Dosage: MOST RECENT DOSE RECEIVED PRIOR TO EVENT ON 30/DEC/2015
     Route: 042
     Dates: start: 20130123
  2. CALCIUM CARBONATE. [Concomitant]
     Active Substance: CALCIUM CARBONATE
     Dosage: 1G/DAY
     Route: 065
  3. METHYLPREDNISOLONE. [Concomitant]
     Active Substance: METHYLPREDNISOLONE
     Dosage: 4MG/DAY
     Route: 065
  4. GLUCOPHAGE [Concomitant]
     Active Substance: METFORMIN HYDROCHLORIDE
     Dosage: 1000MG - 2X/DAY
     Route: 065
  5. ULTOP [Concomitant]
     Route: 065
  6. ALFACALCIDOL [Concomitant]
     Active Substance: ALFACALCIDOL
     Dosage: 1UG/DAY
     Route: 065
  7. OLFEN (SLOVENIA) [Concomitant]
     Dosage: 100MG/DAY
     Route: 065
  8. GLUCOTROL XL [Concomitant]
     Active Substance: GLIPIZIDE
     Dosage: 10MG/DAY
     Route: 065

REACTIONS (4)
  - Pneumonia klebsiella [Recovered/Resolved]
  - Candida pneumonia [Recovered/Resolved]
  - Hypogammaglobulinaemia [Unknown]
  - Interstitial lung disease [Recovered/Resolved]

NARRATIVE: CASE EVENT DATE: 20160426
